FAERS Safety Report 17538740 (Version 2)
Quarter: 2022Q4

REPORT INFORMATION
  Report Type: Spontaneous
  Country: US (occurrence: US)
  Receive Date: 20200313
  Receipt Date: 20221027
  Transmission Date: 20230113
  Serious: No
  Sender: FDA-Public Use
  Company Number: US-NOVARTISTESTPH-NVSC2020US071956

PATIENT
  Age: 30 Year
  Sex: Female

DRUGS (14)
  1. LIDOCAINE [Suspect]
     Active Substance: LIDOCAINE
     Indication: Product used for unknown indication
     Dosage: 30 MG
     Route: 065
  2. CISATRACURIUM BESYLATE [Suspect]
     Active Substance: CISATRACURIUM BESYLATE
     Indication: Product used for unknown indication
     Dosage: 4 MG
     Route: 065
  3. PROPOFOL [Suspect]
     Active Substance: PROPOFOL
     Indication: Product used for unknown indication
     Dosage: 60 MG
     Route: 065
  4. SUCCINYLCHOLINE [Suspect]
     Active Substance: SUCCINYLCHOLINE
     Indication: Product used for unknown indication
     Dosage: 120 MG
     Route: 065
  5. CITRIC ACID MONOHYDRATE\SODIUM CITRATE [Suspect]
     Active Substance: CITRIC ACID MONOHYDRATE\SODIUM CITRATE
     Indication: Product used for unknown indication
     Dosage: 30 ML
     Route: 065
  6. FENTANYL [Suspect]
     Active Substance: FENTANYL
     Indication: Product used for unknown indication
     Dosage: 50 UG
     Route: 065
  7. FAMOTIDINE [Suspect]
     Active Substance: FAMOTIDINE
     Indication: Product used for unknown indication
     Dosage: 20 MG
     Route: 065
  8. METOCLOPRAMIDE [Suspect]
     Active Substance: METOCLOPRAMIDE
     Indication: Product used for unknown indication
     Dosage: 10 MG (PRE INDUCATION)
     Route: 065
  9. SEVOFLURANE [Suspect]
     Active Substance: SEVOFLURANE
     Indication: Product used for unknown indication
     Dosage: UNK
     Route: 065
  10. PHENYLEPHRINE [Suspect]
     Active Substance: PHENYLEPHRINE HYDROCHLORIDE
     Indication: Product used for unknown indication
     Dosage: 50-100 UG (TOTAL OF 400 UG)
     Route: 040
  11. HEPARIN [Suspect]
     Active Substance: HEPARIN SODIUM
     Indication: Product used for unknown indication
     Dosage: 100 UNITS/KG (7000 UNITS)
     Route: 065
  12. PROTAMINE [Suspect]
     Active Substance: PROTAMINE
     Indication: Product used for unknown indication
     Dosage: 70 MG
     Route: 065
  13. GLYCOPYRROLATE [Suspect]
     Active Substance: GLYCOPYRROLATE
     Indication: Product used for unknown indication
     Dosage: 0.6 MG
     Route: 065
  14. NEOSTIGMINE [Suspect]
     Active Substance: NEOSTIGMINE
     Indication: Product used for unknown indication
     Dosage: 3 MG
     Route: 065

REACTIONS (3)
  - Normal newborn [Unknown]
  - Delivery [Unknown]
  - Maternal exposure during pregnancy [Unknown]
